FAERS Safety Report 9833056 (Version 1)
Quarter: 2014Q1

REPORT INFORMATION
  Report Type: Spontaneous
  Country: US (occurrence: US)
  Receive Date: 20140121
  Receipt Date: 20140121
  Transmission Date: 20141002
  Serious: Yes (Other)
  Sender: FDA-Public Use
  Company Number: US-PFIZER INC-2014016335

PATIENT
  Age: 56 Year
  Sex: Male
  Weight: 160 kg

DRUGS (2)
  1. LYRICA [Suspect]
     Indication: PAIN IN EXTREMITY
     Dosage: 150 MG, 2X/DAY
     Route: 048
     Dates: start: 2006
  2. LYRICA [Suspect]
     Indication: PAIN IN EXTREMITY

REACTIONS (3)
  - Neoplasm malignant [Unknown]
  - Thyroid disorder [Not Recovered/Not Resolved]
  - Tracheal disorder [Unknown]
